FAERS Safety Report 12675475 (Version 3)
Quarter: 2016Q3

REPORT INFORMATION
  Report Type: Spontaneous
  Country: GB (occurrence: GB)
  Receive Date: 20160823
  Receipt Date: 20160906
  Transmission Date: 20161109
  Serious: Yes (Hospitalization, Other)
  Sender: FDA-Public Use
  Company Number: GB-ACCORD-043228

PATIENT
  Sex: Female

DRUGS (7)
  1. VINCRISTINE [Suspect]
     Active Substance: VINCRISTINE
     Indication: DIFFUSE LARGE B-CELL LYMPHOMA
     Dosage: RCHOP CHEMOTHERAPY, FIRST DOSE, DOSAGE FORM: UNKNOWN
     Route: 065
  2. PREDNISOLONE. [Suspect]
     Active Substance: PREDNISOLONE
     Indication: DIFFUSE LARGE B-CELL LYMPHOMA
     Dosage: RCHOP CHEMOTHERAPY, DOSAGE FORM: UNKNOWN
     Route: 065
  3. RITUXIMAB [Suspect]
     Active Substance: RITUXIMAB
     Indication: LYMPHOMA
     Dosage: FIRST DOSE OF RCHOP CHEMOTHERAPY,?DOSAGE FORM: UNKNOWN
  4. ETOPOSIDE. [Suspect]
     Active Substance: ETOPOSIDE
     Indication: NEOPLASM MALIGNANT
     Dosage: RESHAP CHEMOTHERAPY
  5. CYCLOPHOSPHAMIDE/CYCLOPHOSPHAMIDE MONOHYDRATE [Suspect]
     Active Substance: CYCLOPHOSPHAMIDE
     Indication: LYMPHOMA
     Dosage: FIRST DOSE OF RCHOP CHEMOTHERAPY, DOSAGE FORM: UNKNOWN
  6. CISPLATIN. [Suspect]
     Active Substance: CISPLATIN
     Indication: NEOPLASM MALIGNANT
     Dosage: RESHAP CHEMOTHERAPY
  7. DOXORUBICIN/DOXORUBICIN HYDROCHLORIDE [Suspect]
     Active Substance: DOXORUBICIN HYDROCHLORIDE
     Indication: DIFFUSE LARGE B-CELL LYMPHOMA
     Dosage: RCHOP CHEMOTHERAPY, LIPOSOMAL INJECTION
     Route: 065

REACTIONS (6)
  - Neutropenia [Unknown]
  - Hiccups [Unknown]
  - Neoplasm progression [Unknown]
  - Alopecia [Unknown]
  - Disease progression [Unknown]
  - Infection [Unknown]
